FAERS Safety Report 12966370 (Version 1)
Quarter: 2016Q4

REPORT INFORMATION
  Report Type: Spontaneous
  Country: US (occurrence: US)
  Receive Date: 20161121
  Receipt Date: 20161121
  Transmission Date: 20170207
  Serious: Yes (Other)
  Sender: FDA-Public Use
  Company Number: None

PATIENT
  Age: 50 Year
  Sex: Male
  Weight: 72 kg

DRUGS (3)
  1. TRIUMEQ [Concomitant]
     Active Substance: ABACAVIR SULFATE\DOLUTEGRAVIR SODIUM\LAMIVUDINE
  2. ATRIPLA [Suspect]
     Active Substance: EFAVIRENZ\EMTRICITABINE\TENOFOVIR DISOPROXIL FUMARATE
  3. SUSTIVA [Suspect]
     Active Substance: EFAVIRENZ
     Indication: HIV INFECTION
     Dosage: QUANTITY:1 CAPSULE(S); DAILY; ORAL ?
     Route: 048

REACTIONS (8)
  - Pancreatic disorder [None]
  - Internal haemorrhage [None]
  - Product formulation issue [None]
  - Asthenia [None]
  - Hepatic enzyme increased [None]
  - Renal disorder [None]
  - Abdominal distension [None]
  - Hepatic lesion [None]
